FAERS Safety Report 9486031 (Version 1)
Quarter: 2013Q3

REPORT INFORMATION
  Report Type: Spontaneous
  Country: US (occurrence: None)
  Receive Date: 20130827
  Receipt Date: 20130827
  Transmission Date: 20140515
  Serious: Yes (Other)
  Sender: FDA-Public Use
  Company Number: None

PATIENT
  Age: 52 Year
  Sex: 0
  Weight: 50 kg

DRUGS (3)
  1. ALLOPURINOL [Suspect]
     Indication: GOUTY ARTHRITIS
  2. METFORMIN [Suspect]
  3. COLCHINE [Suspect]

REACTIONS (1)
  - Drug ineffective [None]
